FAERS Safety Report 7394006-0 (Version None)
Quarter: 2011Q2

REPORT INFORMATION
  Report Type: 
  Country: None (occurrence: None)
  Receive Date: 20110405
  Receipt Date: 20100818
  Transmission Date: 20111010
  Serious: No
  Sender: FDA-Public Use
  Company Number: US-AMGEN-KDL432148

PATIENT
  Age: 42 Year
  Sex: Female

DRUGS (4)
  1. PACLITAXEL [Concomitant]
     Dosage: UNK UNK, UNK
     Dates: start: 20100816
  2. NEULASTA [Suspect]
     Indication: CHEMOTHERAPY
     Dosage: 6 MG, UNK
  3. CYCLOPHOSPHAMIDE [Concomitant]
  4. DOXORUBICIN HCL [Concomitant]

REACTIONS (1)
  - DRUG ADMINISTRATION ERROR [None]
